FAERS Safety Report 20517011 (Version 17)
Quarter: 2022Q3

REPORT INFORMATION
  Report Type: Report from Study
  Country: NO (occurrence: None)
  Receive Date: 20220225
  Receipt Date: 20220811
  Transmission Date: 20221027
  Serious: Yes (Hospitalization)
  Sender: FDA-Public Use
  Company Number: NO-Eisai Medical Research-EC-2022-109368

PATIENT
  Age: 71 Year
  Sex: Male
  Weight: 89 kg

DRUGS (13)
  1. LENVATINIB [Suspect]
     Active Substance: LENVATINIB
     Indication: Clear cell renal cell carcinoma
     Route: 048
     Dates: start: 20220210, end: 20220216
  2. LENVATINIB [Suspect]
     Active Substance: LENVATINIB
     Route: 048
     Dates: start: 20220225, end: 20220228
  3. LENVATINIB [Suspect]
     Active Substance: LENVATINIB
     Dosage: STARTING DOSE AT 20 MG (FLUCTUATED DOSAGE)
     Route: 048
     Dates: start: 20220302
  4. PEMBROLIZUMAB [Suspect]
     Active Substance: PEMBROLIZUMAB
     Indication: Clear cell renal cell carcinoma
     Route: 041
     Dates: start: 20220210, end: 20220210
  5. PEMBROLIZUMAB [Suspect]
     Active Substance: PEMBROLIZUMAB
     Route: 041
     Dates: start: 20220324
  6. ENALAPRILAT [Suspect]
     Active Substance: ENALAPRILAT
     Indication: Hypertension
     Route: 048
     Dates: start: 20080101, end: 20220218
  7. RIFAXIMIN [Concomitant]
     Active Substance: RIFAXIMIN
     Dates: start: 20070101, end: 20220218
  8. NORVASC [Concomitant]
     Active Substance: AMLODIPINE BESYLATE
     Dates: start: 20080101, end: 20220315
  9. METFORMIN [Concomitant]
     Active Substance: METFORMIN HYDROCHLORIDE
     Dates: start: 20080101, end: 20220403
  10. PRAVASTATIN [Concomitant]
     Active Substance: PRAVASTATIN
     Dates: start: 20100101
  11. LORATADINE [Concomitant]
     Active Substance: LORATADINE
     Dates: start: 20100101
  12. COLCHICINE [Concomitant]
     Active Substance: COLCHICINE
     Dates: start: 20190101
  13. ACETAMINOPHEN [Concomitant]
     Active Substance: ACETAMINOPHEN
     Dates: start: 20160101, end: 20220216

REACTIONS (3)
  - Malaise [Recovered/Resolved]
  - Pyrexia [Recovered/Resolved]
  - Angioedema [Recovered/Resolved]

NARRATIVE: CASE EVENT DATE: 20220217
